FAERS Safety Report 10030785 (Version 2)
Quarter: 2014Q1

REPORT INFORMATION
  Report Type: Spontaneous
  Country: US (occurrence: US)
  Receive Date: 20140323
  Receipt Date: 20140323
  Transmission Date: 20141002
  Serious: No
  Sender: FDA-Public Use
  Company Number: US-ALLERGAN-1313644US

PATIENT
  Age: 23 Year
  Sex: Female

DRUGS (3)
  1. LATISSE 0.03% [Suspect]
     Indication: GROWTH OF EYELASHES
     Dosage: 2 GTT, QHS
     Route: 061
     Dates: start: 201308, end: 20130903
  2. OVER-THE-COUNTER EYE DROPS [Concomitant]
     Indication: ILL-DEFINED DISORDER
  3. OVER-THE-COUNTER EYE DROPS [Concomitant]
     Indication: ERYTHEMA

REACTIONS (9)
  - Migraine [Recovered/Resolved]
  - Blepharospasm [Recovered/Resolved]
  - Photosensitivity reaction [Recovered/Resolved]
  - Headache [Recovered/Resolved]
  - Headache [Recovered/Resolved]
  - Eyelids pruritus [Recovered/Resolved]
  - Scleral hyperaemia [Recovered/Resolved]
  - Eye pruritus [Recovered/Resolved]
  - Eye irritation [Recovered/Resolved]
